FAERS Safety Report 13059501 (Version 3)
Quarter: 2017Q1

REPORT INFORMATION
  Report Type: Spontaneous
  Country: CH (occurrence: CH)
  Receive Date: 20161223
  Receipt Date: 20170301
  Transmission Date: 20170428
  Serious: Yes (Hospitalization)
  Sender: FDA-Public Use
  Company Number: CH-009507513-1612CHE011395

PATIENT
  Age: 87 Year
  Sex: Female

DRUGS (12)
  1. MYDOCALM (TOLPERISONE HYDROCHLORIDE) [Concomitant]
     Active Substance: TOLPERISONE HYDROCHLORIDE
     Dosage: 125 MG
     Route: 048
     Dates: start: 20161122, end: 20161122
  2. SINTROM [Concomitant]
     Active Substance: ACENOCOUMAROL
  3. DAFALGAN [Concomitant]
     Active Substance: ACETAMINOPHEN
  4. REMERON [Suspect]
     Active Substance: MIRTAZAPINE
     Dosage: 7.5 MG, QD
     Route: 048
     Dates: start: 20161130, end: 20161205
  5. VENLAFAXINE HYDROCHLORIDE. [Interacting]
     Active Substance: VENLAFAXINE HYDROCHLORIDE
     Dosage: 75 MG, QD
     Route: 048
     Dates: start: 20160912, end: 20161124
  6. SEVREDOL [Interacting]
     Active Substance: MORPHINE
     Dosage: 10 MG, Q4H
     Route: 048
     Dates: start: 20161114, end: 20161124
  7. PURSANA [Concomitant]
     Active Substance: FIG FRUIT OIL\SORBITOL
  8. ENALAPRIL MALEATE. [Concomitant]
     Active Substance: ENALAPRIL MALEATE
  9. MYDOCALM (TOLPERISONE HYDROCHLORIDE) [Interacting]
     Active Substance: TOLPERISONE HYDROCHLORIDE
     Dosage: 50 MG, TID
     Route: 048
     Dates: start: 20161123, end: 20161130
  10. LAXOBERON [Concomitant]
     Active Substance: SODIUM PICOSULFATE
  11. PREDNISONE. [Concomitant]
     Active Substance: PREDNISONE
  12. MYDOCALM (TOLPERISONE HYDROCHLORIDE) [Concomitant]
     Active Substance: TOLPERISONE HYDROCHLORIDE
     Dosage: 87.5 MG
     Route: 048
     Dates: start: 20161121, end: 20161121

REACTIONS (1)
  - Rash erythematous [Unknown]

NARRATIVE: CASE EVENT DATE: 20161205
